FAERS Safety Report 9360572 (Version 2)
Quarter: 2013Q2

REPORT INFORMATION
  Report Type: Report from Study
  Country: US (occurrence: US)
  Receive Date: 20130621
  Receipt Date: 20130628
  Transmission Date: 20140414
  Serious: Yes (Hospitalization, Other)
  Sender: FDA-Public Use
  Company Number: US-SHIRE-ALL1-2013-03952

PATIENT
  Age: 3 Year
  Sex: Male
  Weight: 21.6 kg

DRUGS (2)
  1. IDURSULFASE [Suspect]
     Indication: MUCOPOLYSACCHARIDOSIS II
     Dosage: 6 MG, 1X/WEEK
     Route: 041
     Dates: start: 20100604
  2. IBUPROFEN [Concomitant]
     Indication: PREMEDICATION
     Dosage: 150 MG, 1X/WEEK
     Route: 048
     Dates: start: 20130415

REACTIONS (2)
  - Angioedema [Recovered/Resolved]
  - Infusion related reaction [Recovered/Resolved]
